FAERS Safety Report 7830256-4 (Version None)
Quarter: 2011Q4

REPORT INFORMATION
  Report Type: 
  Country: None (occurrence: None)
  Receive Date: 20111021
  Receipt Date: 20111019
  Transmission Date: 20120403
  Serious: No
  Sender: FDA-Public Use
  Company Number: US-B.I. PHARMACEUTICALS,INC./RIDGEFIELD-2011-BP-23404BP

PATIENT
  Age: 88 Year
  Sex: Female

DRUGS (6)
  1. PRADAXA [Suspect]
     Indication: ATRIAL FIBRILLATION
     Dosage: 300 MG
     Route: 048
     Dates: start: 20110701
  2. NORPACE [Concomitant]
     Indication: HYPERTENSION
  3. VITAMIN B-12 [Concomitant]
  4. ZOCOR [Concomitant]
  5. CYANOCOBALAMIN [Concomitant]
  6. SYNTHROID [Concomitant]
     Indication: HYPOTHYROIDISM

REACTIONS (4)
  - PEMPHIGOID [None]
  - PRURITUS [None]
  - RASH MACULAR [None]
  - RASH MACULO-PAPULAR [None]
